FAERS Safety Report 16543987 (Version 1)
Quarter: 2019Q3

REPORT INFORMATION
  Report Type: Spontaneous
  Country: US (occurrence: US)
  Receive Date: 20190528
  Receipt Date: 20190528
  Transmission Date: 20191004
  Serious: No
  Sender: FDA-Public Use
  Company Number: None

PATIENT
  Sex: Female

DRUGS (1)
  1. HUMIRA [Suspect]
     Active Substance: ADALIMUMAB
     Indication: HIRSUTISM
     Route: 058
     Dates: start: 20180419, end: 20180801

REACTIONS (2)
  - Adverse drug reaction [None]
  - Drug intolerance [None]
